FAERS Safety Report 4616688-6 (Version None)
Quarter: 2005Q2

REPORT INFORMATION
  Report Type: 
  Country: None (occurrence: None)
  Receive Date: 20050311
  Receipt Date: 20050104
  Transmission Date: 20051028
  Serious: No
  Sender: FDA-Public Use
  Company Number: 2005-00211

PATIENT
  Age: 57 Year
  Sex: Male
  Weight: 115 kg

DRUGS (3)
  1. VELCADE [Suspect]
     Indication: MULTIPLE MYELOMA
     Dosage: 1.30 MG/M2, IV BOLUS
     Route: 040
     Dates: start: 20041203, end: 20041213
  2. THALIDOMIDE [Concomitant]
  3. DECADRON [Concomitant]

REACTIONS (1)
  - THROMBOCYTOPENIA [None]
